FAERS Safety Report 5531516-2 (Version None)
Quarter: 2007Q4

REPORT INFORMATION
  Report Type: 
  Country: None (occurrence: None)
  Receive Date: 20071203
  Receipt Date: 20071129
  Transmission Date: 20080405
  Serious: Yes (Hospitalization, Other)
  Sender: FDA-Public Use
  Company Number: DE-BRISTOL-MYERS SQUIBB COMPANY-13957253

PATIENT
  Age: 28 Year
  Sex: Male

DRUGS (3)
  1. BARACLUDE [Suspect]
     Indication: HEPATITIS B
     Route: 048
     Dates: start: 20070801
  2. ADEFOVIR DIPIVOXIL KIT [Concomitant]
     Indication: HEPATITIS B
     Route: 048
     Dates: start: 20070801
  3. METHADONE [Concomitant]
     Indication: DEPENDENCE
     Dates: start: 20040101

REACTIONS (2)
  - HEPATOCELLULAR DAMAGE [None]
  - TRANSAMINASES INCREASED [None]
